FAERS Safety Report 20993578 (Version 2)
Quarter: 2023Q1

REPORT INFORMATION
  Report Type: Spontaneous
  Country: US (occurrence: None)
  Receive Date: 20220622
  Receipt Date: 20230208
  Transmission Date: 20230418
  Serious: Yes (Death)
  Sender: FDA-Public Use
  Company Number: US-ROCHE-3119845

PATIENT
  Age: 37 Year
  Sex: Male

DRUGS (1)
  1. RITUXAN [Suspect]
     Active Substance: RITUXIMAB
     Indication: Product used for unknown indication
     Dosage: OTHER
     Route: 041
     Dates: start: 20170903, end: 20220615

REACTIONS (1)
  - Death [Fatal]

NARRATIVE: CASE EVENT DATE: 20220615
